FAERS Safety Report 16871612 (Version 1)
Quarter: 2019Q3

REPORT INFORMATION
  Report Type: Spontaneous
  Country: US (occurrence: US)
  Receive Date: 20190806
  Receipt Date: 20190806
  Transmission Date: 20191007
  Serious: Yes (Hospitalization)
  Sender: FDA-Public Use
  Company Number: None

PATIENT
  Age: 76 Year
  Sex: Male

DRUGS (1)
  1. WARFARIN [Suspect]
     Active Substance: WARFARIN
     Indication: ATRIAL FIBRILLATION
     Route: 048
     Dates: start: 20180215

REACTIONS (5)
  - Therapy cessation [None]
  - Dialysis [None]
  - International normalised ratio increased [None]
  - Arteriovenous fistula site haemorrhage [None]
  - Malaise [None]

NARRATIVE: CASE EVENT DATE: 20190801
